FAERS Safety Report 4401410-9 (Version None)
Quarter: 2004Q3

REPORT INFORMATION
  Report Type: 
  Country: None (occurrence: None)
  Receive Date: 20040907
  Receipt Date: 20040423
  Transmission Date: 20050211
  Serious: No
  Sender: FDA-Public Use
  Company Number: US-BRISTOL-MYERS SQUIBB COMPANY-12568796

PATIENT
  Age: 15 Year
  Sex: Female
  Weight: 54 kg

DRUGS (4)
  1. COUMADIN [Suspect]
     Indication: HEART VALVE REPLACEMENT
     Dosage: VARYING DOSES; CURRENTLY ON 3.5MG DAILY
     Route: 048
     Dates: start: 20020101
  2. NEURONTIN [Concomitant]
  3. PREVACID [Concomitant]
  4. ZYRTEC [Concomitant]

REACTIONS (2)
  - DRUG INEFFECTIVE [None]
  - INTERNATIONAL NORMALISED RATIO DECREASED [None]
